FAERS Safety Report 6623827-4 (Version None)
Quarter: 2010Q1

REPORT INFORMATION
  Report Type: 
  Country: None (occurrence: None)
  Receive Date: 20100310
  Receipt Date: 20100225
  Transmission Date: 20100710
  Serious: Yes (Hospitalization)
  Sender: FDA-Public Use
  Company Number: PHHY2010BE11238

PATIENT
  Age: 80 Year
  Sex: Female

DRUGS (1)
  1. ACLASTA [Suspect]
     Indication: OSTEOPOROSIS
     Dosage: SINGLE INFUSION
     Route: 042
     Dates: start: 20100216

REACTIONS (4)
  - EPILEPSY [None]
  - HYPOCALCAEMIA [None]
  - RENAL FAILURE [None]
  - VITAMIN D DECREASED [None]
